FAERS Safety Report 7118535-X (Version None)
Quarter: 2010Q4

REPORT INFORMATION
  Report Type: 
  Country: None (occurrence: None)
  Receive Date: 20101123
  Receipt Date: 20101117
  Transmission Date: 20110411
  Serious: Yes (Death, Other)
  Sender: FDA-Public Use
  Company Number: US-CELGENEUS-163-21880-10072528

PATIENT
  Sex: Male

DRUGS (6)
  1. REVLIMID [Suspect]
     Indication: MULTIPLE MYELOMA
     Route: 048
     Dates: start: 20100101
  2. REVLIMID [Suspect]
     Route: 048
     Dates: start: 20100629, end: 20100709
  3. ZOMETA [Concomitant]
     Indication: MULTIPLE MYELOMA
     Route: 065
     Dates: start: 20100611, end: 20100709
  4. DEXAMETHASONE [Concomitant]
     Indication: MULTIPLE MYELOMA
     Route: 065
     Dates: start: 20090101, end: 20100701
  5. PERCOCET [Concomitant]
     Indication: PAIN
     Route: 065
     Dates: start: 20100601, end: 20100701
  6. PROCRIT [Concomitant]
     Route: 058
     Dates: start: 20100629, end: 20100729

REACTIONS (5)
  - DEHYDRATION [None]
  - FALL [None]
  - INJURY [None]
  - NEUTROPHIL COUNT DECREASED [None]
  - RENAL FAILURE [None]
